FAERS Safety Report 6171223-9 (Version None)
Quarter: 2009Q2

REPORT INFORMATION
  Report Type: 
  Country: None (occurrence: None)
  Receive Date: 20090428
  Receipt Date: 20090428
  Transmission Date: 20091009
  Serious: Yes (Life-Threatening)
  Sender: FDA-Public Use
  Company Number: None

PATIENT
  Age: 40 Year
  Sex: Female
  Weight: 56.6996 kg

DRUGS (4)
  1. YAZ [Suspect]
     Indication: ABDOMINAL DISTENSION
     Dosage: 1 PILL DAILY PO
     Route: 048
     Dates: start: 20080701, end: 20081201
  2. YAZ [Suspect]
     Indication: CONTRACEPTION
     Dosage: 1 PILL DAILY PO
     Route: 048
     Dates: start: 20080701, end: 20081201
  3. YASMIN [Suspect]
     Indication: ABDOMINAL DISTENSION
     Dosage: 1 PILL DAILY PO
     Route: 048
     Dates: start: 20090101, end: 20090301
  4. YASMIN [Suspect]
     Indication: CONTRACEPTION
     Dosage: 1 PILL DAILY PO
     Route: 048
     Dates: start: 20090101, end: 20090301

REACTIONS (1)
  - SUICIDAL IDEATION [None]
